FAERS Safety Report 5676494-0 (Version None)
Quarter: 2008Q2

REPORT INFORMATION
  Report Type: 
  Country: None (occurrence: None)
  Receive Date: 20080313
  Receipt Date: 20070608
  Transmission Date: 20081010
  Serious: Yes (Other)
  Sender: FDA-Public Use
  Company Number: 37925

PATIENT
  Sex: Male

DRUGS (1)
  1. DOXYCYCLINE [Suspect]
     Indication: RESPIRATORY TRACT INFECTION
     Dosage: 100MG/IV
     Route: 042
     Dates: start: 20070608

REACTIONS (1)
  - INJECTION SITE REACTION [None]
